FAERS Safety Report 8380341-6 (Version None)
Quarter: 2012Q2

REPORT INFORMATION
  Report Type: 
  Country: None (occurrence: None)
  Receive Date: 20120523
  Receipt Date: 20120517
  Transmission Date: 20120825
  Serious: Yes (Hospitalization, Other)
  Sender: FDA-Public Use
  Company Number: TR-BAYER-2012-048798

PATIENT
  Age: 37 Year
  Sex: Male

DRUGS (2)
  1. GADAVIST [Suspect]
     Indication: NUCLEAR MAGNETIC RESONANCE IMAGING
     Dosage: 14 ML, ONCE
     Route: 042
  2. GADAVIST [Suspect]
     Indication: ARTHRALGIA

REACTIONS (4)
  - PULMONARY OEDEMA [None]
  - HYPOKALAEMIA [None]
  - ANAPHYLACTIC SHOCK [None]
  - BLOOD CALCIUM DECREASED [None]
